FAERS Safety Report 7235919-X (Version None)
Quarter: 2011Q1

REPORT INFORMATION
  Report Type: 
  Country: None (occurrence: None)
  Receive Date: 20110120
  Receipt Date: 20110114
  Transmission Date: 20110831
  Serious: Yes (Hospitalization)
  Sender: FDA-Public Use
  Company Number: A0794473A

PATIENT
  Age: 57 Year
  Sex: Male
  Weight: 97.5 kg

DRUGS (10)
  1. XANAX [Concomitant]
  2. VICODIN [Concomitant]
  3. METFORMIN HYDROCHLORIDE [Concomitant]
  4. PAXIL [Concomitant]
  5. LISINOPRIL [Concomitant]
  6. AVANDIA [Suspect]
     Dosage: 2MG PER DAY
     Route: 048
     Dates: start: 20040601, end: 20090501
  7. METHYLPHENIDATE HCL [Concomitant]
  8. DURAGESIC-50 [Concomitant]
  9. GABAPENTIN [Concomitant]
  10. ALLOPURINOL [Concomitant]

REACTIONS (3)
  - TRANSIENT ISCHAEMIC ATTACK [None]
  - AMNESIA [None]
  - CEREBROVASCULAR ACCIDENT [None]
